FAERS Safety Report 9483077 (Version 1)
Quarter: 2013Q3

REPORT INFORMATION
  Report Type: Spontaneous
  Country: US (occurrence: US)
  Receive Date: 20130828
  Receipt Date: 20130828
  Transmission Date: 20140515
  Serious: Yes (Hospitalization, Other)
  Sender: FDA-Public Use
  Company Number: US-AMGEN-US084378

PATIENT
  Age: 44 Year
  Sex: Male

DRUGS (2)
  1. ENBREL [Suspect]
     Indication: PSORIATIC ARTHROPATHY
     Dosage: 25 MG, 2 TIMES/WK
     Route: 058
     Dates: start: 20020601
  2. METHOTREXATE [Concomitant]
     Dosage: UNK UNK, UNK
     Dates: start: 20020601, end: 20021001

REACTIONS (7)
  - Demyelinating polyneuropathy [Unknown]
  - Condition aggravated [Unknown]
  - Cardiac failure congestive [Unknown]
  - Arthralgia [Unknown]
  - Joint swelling [Unknown]
  - Condition aggravated [Unknown]
  - Neck pain [Unknown]
